FAERS Safety Report 24698805 (Version 2)
Quarter: 2024Q4

REPORT INFORMATION
  Report Type: Report from Study
  Country: US (occurrence: US)
  Receive Date: 20241205
  Receipt Date: 20241231
  Transmission Date: 20250114
  Serious: No
  Sender: ABBVIE
  Company Number: US-ABBVIE-6030237

PATIENT
  Age: 66 Year
  Sex: Female
  Weight: 74.842 kg

DRUGS (1)
  1. CREON [Suspect]
     Active Substance: PANCRELIPASE AMYLASE\PANCRELIPASE LIPASE\PANCRELIPASE PROTEASE
     Indication: Pancreatic failure
     Dosage: 2 CAPS EACH MEAL AND 1 CAP EACH SNACK?FORM STRENGTH: 36000 UNIT
     Route: 048
     Dates: start: 20240827

REACTIONS (2)
  - Mammogram abnormal [Unknown]
  - Incision site swelling [Recovering/Resolving]

NARRATIVE: CASE EVENT DATE: 20240101
